FAERS Safety Report 6127236-6 (Version None)
Quarter: 2009Q1

REPORT INFORMATION
  Report Type: 
  Country: None (occurrence: None)
  Receive Date: 20090318
  Receipt Date: 20090303
  Transmission Date: 20090719
  Serious: Yes (Hospitalization)
  Sender: FDA-Public Use
  Company Number: 09P-028-0560597-00

PATIENT
  Age: 1 Month
  Sex: Female

DRUGS (6)
  1. SYNAGIS [Suspect]
     Indication: RESPIRATORY SYNCYTIAL VIRUS INFECTION
     Dosage: (36 MG) INTRAMUSCULAR ; (45 MG) INTRAMUSCULAR
     Route: 030
     Dates: start: 20081220, end: 20081220
  2. SYNAGIS [Suspect]
     Indication: RESPIRATORY SYNCYTIAL VIRUS INFECTION
     Dosage: (36 MG) INTRAMUSCULAR ; (45 MG) INTRAMUSCULAR
     Route: 030
     Dates: start: 20090112, end: 20090112
  3. TIVISOL (VITAMINSUPPLEMENT) (TIVISOL (VITAMINSUPPLEMENT)) [Concomitant]
  4. SALBUTAMOL NEB (SALBUTAMOL NEB) [Concomitant]
  5. SODIUM CL 3% NEBULIZER SALIN (SODIUM CL 3% NEBULSIZER SALIN) [Concomitant]
  6. ORNOF(ORNIDAZOLE, OFLOXACIN HYDROCHLORIDE) [Concomitant]

REACTIONS (5)
  - APNOEA [None]
  - BRADYCARDIA [None]
  - FEEDING DISORDER NEONATAL [None]
  - RESPIRATORY DISTRESS [None]
  - RESPIRATORY SYNCYTIAL VIRUS TEST POSITIVE [None]
